FAERS Safety Report 6022554-4 (Version None)
Quarter: 2008Q4

REPORT INFORMATION
  Report Type: 
  Country: None (occurrence: None)
  Receive Date: 20081230
  Receipt Date: 20081219
  Transmission Date: 20090506
  Serious: Yes (Hospitalization, Other)
  Sender: FDA-Public Use
  Company Number: PHHY2008CH32658

PATIENT
  Age: 20 Year
  Sex: Female
  Weight: 43 kg

DRUGS (4)
  1. RITALIN [Suspect]
     Dosage: 30 MG DAILY
     Dates: start: 20080401
  2. XANAX [Concomitant]
     Dosage: 0.5 MG/D
  3. SIFROL [Concomitant]
     Dosage: 0.5 MG/DAY
     Dates: start: 20070301
  4. CITALOPRAM [Concomitant]
     Dosage: 18 MG/ DAY
     Dates: start: 20080901

REACTIONS (2)
  - DIARRHOEA [None]
  - WEIGHT DECREASED [None]
